FAERS Safety Report 6260291-1 (Version None)
Quarter: 2009Q3

REPORT INFORMATION
  Report Type: 
  Country: None (occurrence: None)
  Receive Date: 20090708
  Receipt Date: 20090706
  Transmission Date: 20100115
  Serious: Yes (Death, Hospitalization, Other)
  Sender: FDA-Public Use
  Company Number: US-ASTRAZENECA-2008UW27599

PATIENT
  Age: 622 Month
  Sex: Male

DRUGS (5)
  1. SEROQUEL [Suspect]
     Indication: DEPRESSION
     Route: 048
     Dates: start: 20050524, end: 20071031
  2. CITALOPRAM HYDROBROMIDE [Concomitant]
     Dates: start: 20050818, end: 20090101
  3. LEXAPRO [Concomitant]
     Dates: start: 20030918, end: 20090101
  4. LORAZEPAM [Concomitant]
     Dates: start: 20030918, end: 20090101
  5. WELLBUTRIN XL [Concomitant]
     Dates: start: 20071210, end: 20090101

REACTIONS (6)
  - DEATH [None]
  - MEDIASTINAL ABSCESS [None]
  - PANCREATITIS [None]
  - PERICARDIAL CYST [None]
  - PERICARDIAL EFFUSION [None]
  - TYPE 2 DIABETES MELLITUS [None]
